FAERS Safety Report 4975394-9 (Version None)
Quarter: 2006Q2

REPORT INFORMATION
  Report Type: 
  Country: None (occurrence: None)
  Receive Date: 20060418
  Receipt Date: 20050414
  Transmission Date: 20061013
  Serious: Yes (Hospitalization)
  Sender: FDA-Public Use
  Company Number: US-MERCK-0504USA02522

PATIENT
  Age: 55 Year
  Sex: Female
  Weight: 68 kg

DRUGS (3)
  1. VIOXX [Suspect]
     Indication: ARTHRITIS
     Route: 048
     Dates: start: 20010101, end: 20030101
  2. PREMPRO [Concomitant]
     Route: 065
  3. PRILOSEC [Concomitant]
     Route: 065

REACTIONS (3)
  - CARDIOVASCULAR DISORDER [None]
  - CORONARY ARTERY DISEASE [None]
  - KNEE ARTHROPLASTY [None]
